FAERS Safety Report 8064520-3 (Version None)
Quarter: 2012Q1

REPORT INFORMATION
  Report Type: 
  Country: None (occurrence: None)
  Receive Date: 20120123
  Receipt Date: 20120119
  Transmission Date: 20120608
  Serious: Yes (Death)
  Sender: FDA-Public Use
  Company Number: US-PFIZER INC-2010001005

PATIENT
  Age: 42 Year
  Sex: Female

DRUGS (3)
  1. ALTACE [Suspect]
     Dosage: UNK
     Route: 048
  2. VERAPAMIL HCL [Suspect]
     Route: 048
  3. ALPRAZOLAM [Suspect]
     Route: 048

REACTIONS (1)
  - COMPLETED SUICIDE [None]
